FAERS Safety Report 9148849 (Version 1)
Quarter: 2013Q1

REPORT INFORMATION
  Report Type: Spontaneous
  Country: FR (occurrence: FR)
  Receive Date: 20130308
  Receipt Date: 20130308
  Transmission Date: 20140127
  Serious: Yes (Hospitalization)
  Sender: FDA-Public Use
  Company Number: FR-SANOFI-AVENTIS-2013SA020189

PATIENT
  Age: 91 Year
  Sex: Female

DRUGS (8)
  1. LASILIX [Suspect]
     Indication: HYPERTENSION
     Route: 048
     Dates: end: 20121223
  2. PREVISCAN [Suspect]
     Indication: ARRHYTHMIA
     Route: 048
     Dates: end: 20121217
  3. ADANCOR [Suspect]
     Indication: ARRHYTHMIA
     Route: 048
     Dates: end: 20121218
  4. DIFFU K [Suspect]
     Indication: HYPOKALAEMIA
     Route: 048
     Dates: end: 20121224
  5. CARDENSIEL [Concomitant]
     Dosage: STRENGTH: 2.5 MG
     Route: 048
  6. CYMBALTA [Concomitant]
     Dosage: STRENGTH: 30 MG
     Route: 048
  7. HALDOL [Concomitant]
     Route: 048
  8. XANAX [Concomitant]
     Dosage: STRENGTH: 0.25 MG
     Route: 048

REACTIONS (2)
  - Haematoma [Recovered/Resolved]
  - Anaemia [Recovered/Resolved]
